FAERS Safety Report 7438140-5 (Version None)
Quarter: 2011Q2

REPORT INFORMATION
  Report Type: 
  Country: None (occurrence: None)
  Receive Date: 20110421
  Receipt Date: 20110421
  Transmission Date: 20111010
  Serious: Yes (Other)
  Sender: FDA-Public Use
  Company Number: None

PATIENT
  Age: 26 Year
  Sex: Female
  Weight: 111.1313 kg

DRUGS (1)
  1. MIRENA [Suspect]
     Dates: start: 20080701, end: 20110501

REACTIONS (5)
  - IRRITABILITY [None]
  - WEIGHT INCREASED [None]
  - BACK PAIN [None]
  - ACNE [None]
  - PARAESTHESIA [None]
